FAERS Safety Report 7720873-4 (Version None)
Quarter: 2011Q3

REPORT INFORMATION
  Report Type: 
  Country: None (occurrence: None)
  Receive Date: 20110831
  Receipt Date: 20110826
  Transmission Date: 20111222
  Serious: Yes (Other)
  Sender: FDA-Public Use
  Company Number: US-SANOFI-AVENTIS-2011SA055296

PATIENT
  Age: 77 Year
  Sex: Female

DRUGS (10)
  1. OMEPRAZOLE [Concomitant]
  2. GLIMEPIRIDE [Concomitant]
  3. TYLENOL-500 [Concomitant]
  4. MULTAQ [Suspect]
     Route: 048
     Dates: start: 20110101
  5. SIMVASTATIN [Concomitant]
  6. DIOVAN [Concomitant]
  7. MIRTAZAPINE [Concomitant]
  8. MULTAQ [Suspect]
     Route: 048
     Dates: end: 20110101
  9. CALCIUM/VITAMINS NOS [Concomitant]
  10. MULTAQ [Suspect]
     Indication: ATRIAL FIBRILLATION
     Route: 048
     Dates: start: 20100701

REACTIONS (2)
  - INTENTIONAL DRUG MISUSE [None]
  - ATRIAL FIBRILLATION [None]
